FAERS Safety Report 7226725-0 (Version None)
Quarter: 2011Q1

REPORT INFORMATION
  Report Type: 
  Country: None (occurrence: None)
  Receive Date: 20110105
  Receipt Date: 20101229
  Transmission Date: 20110831
  Serious: Yes (Other)
  Sender: FDA-Public Use
  Company Number: FR-20100265

PATIENT
  Age: 72 Year
  Sex: Female

DRUGS (1)
  1. HEXABRIX [Suspect]
     Indication: ARTERIOGRAM CORONARY
     Dosage: INTRAVENOUS
     Route: 042
     Dates: start: 20101216, end: 20101216

REACTIONS (1)
  - HYPERSENSITIVITY [None]
